FAERS Safety Report 14292605 (Version 2)
Quarter: 2018Q1

REPORT INFORMATION
  Report Type: Spontaneous
  Country: US (occurrence: US)
  Receive Date: 20171215
  Receipt Date: 20180110
  Transmission Date: 20180509
  Serious: No
  Sender: FDA-Public Use
  Company Number: US-PFIZER INC-2017536845

PATIENT
  Age: 65 Year
  Sex: Female
  Weight: 88 kg

DRUGS (1)
  1. IBRANCE [Suspect]
     Active Substance: PALBOCICLIB
     Indication: BREAST CANCER FEMALE
     Dosage: 125 MG, CYCLIC (DAILY FOR 21DAYS, THEN 7 DAYS OFF)
     Route: 048
     Dates: start: 20171201

REACTIONS (4)
  - White blood cell count decreased [Unknown]
  - Fatigue [Unknown]
  - Nasal dryness [Unknown]
  - Nasal crusting [Unknown]

NARRATIVE: CASE EVENT DATE: 201712
